FAERS Safety Report 23645841 (Version 1)
Quarter: 2024Q1

REPORT INFORMATION
  Report Type: Spontaneous
  Country: US (occurrence: US)
  Receive Date: 20240319
  Receipt Date: 20240319
  Transmission Date: 20240409
  Serious: Yes (Other)
  Sender: FDA-Public Use
  Company Number: US-BRISTOL-MYERS SQUIBB COMPANY-2024-041553

PATIENT
  Age: 72 Year
  Sex: Male

DRUGS (2)
  1. ELIQUIS [Suspect]
     Active Substance: APIXABAN
     Indication: Thrombosis
  2. ELIQUIS [Suspect]
     Active Substance: APIXABAN
     Dosage: 5 MG TABLET CUT THEM IN HALF TO TAKE A 2.5MG DOSE

REACTIONS (3)
  - Cardiac disorder [Unknown]
  - Myocardial rupture [Unknown]
  - Off label use [Unknown]
